FAERS Safety Report 13304546 (Version 1)
Quarter: 2017Q1

REPORT INFORMATION
  Report Type: Spontaneous
  Country: US (occurrence: US)
  Receive Date: 20170307
  Receipt Date: 20170307
  Transmission Date: 20170428
  Serious: Yes (Hospitalization)
  Sender: FDA-Public Use
  Company Number: None

PATIENT
  Age: 61 Year
  Sex: Female
  Weight: 66.92 kg

DRUGS (1)
  1. DOCETAXEL 10 MG/ML SANDOZ [Suspect]
     Active Substance: DOCETAXEL
     Route: 042
     Dates: start: 20170126, end: 20170216

REACTIONS (5)
  - Dyspnoea [None]
  - Erythema [None]
  - Photopsia [None]
  - Dysgeusia [None]
  - Infusion related reaction [None]

NARRATIVE: CASE EVENT DATE: 20170216
